FAERS Safety Report 8486489 (Version 2)
Quarter: 2013Q2

REPORT INFORMATION
  Report Type: Spontaneous
  Country: US (occurrence: None)
  Receive Date: 20120314
  Receipt Date: 20120913
  Transmission Date: 20140414
  Serious: Yes (Hospitalization)
  Sender: FDA-Public Use
  Company Number: PHHY2011US47126

PATIENT
  Age: 24 Year
  Sex: Female

DRUGS (15)
  1. EXTAVIA [Suspect]
     Indication: MULTIPLE SCLEROSIS
     Route: 058
     Dates: start: 20101214
  2. BACLOFEN (BACLFEN) [Concomitant]
  3. AMBIEN [Concomitant]
  4. DEPAKOTE [Concomitant]
  5. TYLENOL (PARACETAMOL) [Concomitant]
  6. MOTRIN [Concomitant]
  7. VIMPAT (LACOSAMIDE) [Concomitant]
  8. KLONOPIN (CLONAZEPAM) (TABLETS) [Concomitant]
  9. TEMAZEPAM (TEMAZEPAM) [Concomitant]
  10. FLEXERIL (CYCLOBENZAPRINE HYDROCHLORIDE) [Concomitant]
  11. DILAUDID (HYDROMORPHONE HYDROCHLORIDE) [Concomitant]
  12. CYMBALTA (DULOXETINE HYDROCHLORIDE) [Concomitant]
  13. DILANTIN (PHENYTOIN SODIUM) [Concomitant]
  14. REMERON (MIRTAZAPINE) [Concomitant]
  15. ZOFRAN (ONDANSETRON HYDROCHLORIDE) [Concomitant]

REACTIONS (5)
  - CONVULSION [None]
  - AMNESIA [None]
  - FATIGUE [None]
  - MALAISE [None]
  - Muscle twitching [None]
